FAERS Safety Report 23550160 (Version 1)
Quarter: 2024Q1

REPORT INFORMATION
  Report Type: Spontaneous
  Country: US (occurrence: None)
  Receive Date: 20240220
  Receipt Date: 20240220
  Transmission Date: 20240409
  Serious: Yes (Death)
  Sender: FDA-Public Use
  Company Number: None

PATIENT
  Age: 19 Year
  Sex: Male
  Weight: 60.75 kg

DRUGS (2)
  1. SINGULAIR [Suspect]
     Active Substance: MONTELUKAST SODIUM
     Indication: Food allergy
     Dates: start: 20060801, end: 20210427
  2. SINGULAIR [Suspect]
     Active Substance: MONTELUKAST SODIUM
     Indication: Hypersensitivity

REACTIONS (14)
  - Completed suicide [None]
  - COVID-19 [None]
  - Depression [None]
  - Anger [None]
  - Insomnia [None]
  - Self-medication [None]
  - Asthenia [None]
  - Depressed mood [None]
  - Social avoidant behaviour [None]
  - Anxiety [None]
  - Feeling abnormal [None]
  - Taste disorder [None]
  - Exercise tolerance decreased [None]
  - Product communication issue [None]

NARRATIVE: CASE EVENT DATE: 20200701
